FAERS Safety Report 4810309-5 (Version None)
Quarter: 2005Q4

REPORT INFORMATION
  Report Type: 
  Country: None (occurrence: None)
  Receive Date: 20051026
  Receipt Date: 20050816
  Transmission Date: 20060501
  Serious: Yes (Other)
  Sender: FDA-Public Use
  Company Number: JP-ROCHE-414661

PATIENT
  Age: 77 Year
  Sex: Female

DRUGS (3)
  1. CAPECITABINE [Suspect]
     Dosage: 3 WEEKS ADMINISTRATION FOLLOWED BY 1 WEEK REST.
     Route: 048
     Dates: start: 20041202, end: 20050712
  2. CAPECITABINE [Suspect]
     Dosage: 2 WEEKS ADMINISTRATION FOLLOWED BY 1 WEEK REST.
     Route: 048
     Dates: start: 20050712, end: 20050801
  3. PACLITAXEL [Suspect]
     Route: 041
     Dates: start: 20050712, end: 20050815

REACTIONS (4)
  - ALOPECIA [None]
  - HERPES ZOSTER [None]
  - NAUSEA [None]
  - NEUTROPENIA [None]
